FAERS Safety Report 8487430 (Version 3)
Quarter: 2012Q4

REPORT INFORMATION
  Report Type: 
  Country: US (occurrence: US)
  Receive Date: 20120402
  Receipt Date: 20121212
  Transmission Date: 20130627
  Serious: Yes (Other)
  Sender: FDA-Public Use
  Company Number: US-BAYER-2012-030202

PATIENT
  Age: 47 Year
  Sex: Female
  Weight: 161 kg

DRUGS (13)
  1. YAZ [Suspect]
     Indication: CONTRACEPTION
     Dosage: UNK
     Dates: start: 200708, end: 201006
  2. GIANVI [Suspect]
     Indication: CONTRACEPTION
     Dosage: UNK
     Dates: start: 201006, end: 201109
  3. LASIX [Concomitant]
     Dosage: 40 mg, QD
     Route: 048
     Dates: start: 20080721
  4. NEXIUM [Concomitant]
     Dosage: 40 mg, PRN
     Route: 048
     Dates: start: 20100318, end: 20110901
  5. NAPROXEN [Concomitant]
     Dosage: 250 mg, PRN
     Route: 048
     Dates: start: 20110110, end: 20110901
  6. DOXYCYCLINE HYCLATE [Concomitant]
     Indication: TOOTH INFECTION
     Dosage: 100 mg, QD
     Route: 048
     Dates: start: 20110615
  7. CIPROFLOXACIN [Concomitant]
     Dosage: 500 mg, BID
     Dates: start: 20110616
  8. ACETAMINOPHEN W/OXYCODONE [Concomitant]
     Indication: PAIN
     Dosage: UNK
     Route: 048
     Dates: start: 20110615
  9. MELOXICAM [Concomitant]
     Dosage: 15 mg, QD
     Route: 048
     Dates: start: 20110809
  10. MOBIC [Concomitant]
     Indication: KNEE PAIN
  11. MOBIC [Concomitant]
     Indication: FOOT PAIN
  12. ANAPROX [Concomitant]
     Indication: ARTHRALGIA
  13. ANAPROX [Concomitant]
     Indication: PAIN IN EXTREMITY

REACTIONS (9)
  - Deep vein thrombosis [None]
  - Deep vein thrombosis [None]
  - Thrombophlebitis superficial [Recovering/Resolving]
  - Pain [None]
  - Injury [None]
  - General physical health deterioration [None]
  - Anxiety [None]
  - Emotional distress [None]
  - Pain [None]
